FAERS Safety Report 4439652-9 (Version None)
Quarter: 2004Q3

REPORT INFORMATION
  Report Type: 
  Country: None (occurrence: None)
  Receive Date: 20040827
  Receipt Date: 20040812
  Transmission Date: 20050211
  Serious: Yes (Death, Life-Threatening, Hospitalization)
  Sender: FDA-Public Use
  Company Number: K200401237

PATIENT
  Age: 30 Year
  Sex: Female
  Weight: 43.9 kg

DRUGS (11)
  1. SEPTRA [Suspect]
     Indication: INFECTION PROPHYLAXIS
     Dosage: 1 TABLET, Q AM, ORAL
     Route: 048
     Dates: start: 20030901, end: 20031101
  2. MEPRON [Suspect]
     Indication: INFECTION PROPHYLAXIS
     Dosage: 3,000 MG, QD, ORAL;  1,500 MG, QD, ORAL
     Route: 048
     Dates: start: 20030909, end: 20030901
  3. MEPRON [Suspect]
     Indication: INFECTION PROPHYLAXIS
     Dosage: 3,000 MG, QD, ORAL;  1,500 MG, QD, ORAL
     Route: 048
     Dates: start: 20030212, end: 20030908
  4. TENOFOVIR (TENOFOVIR) TABLET, 345MG [Suspect]
     Indication: HIV INFECTION
     Dosage: 345 MG, QD, ORAL;  UNK, UNK, UNK
     Route: 048
     Dates: start: 20030901, end: 20031101
  5. TENOFOVIR (TENOFOVIR) TABLET, 345MG [Suspect]
     Indication: HIV INFECTION
     Dosage: 345 MG, QD, ORAL;  UNK, UNK, UNK
     Route: 048
     Dates: start: 20031215
  6. AMBISOME [Suspect]
     Indication: VISCERAL LEISHMANIASIS
     Dosage: INTRAVENOUS
     Route: 042
     Dates: start: 20031001
  7. ZERIT [Concomitant]
  8. KALETRA [Concomitant]
  9. EPIVIR [Concomitant]
  10. ZOLOFT [Concomitant]
  11. BELOC-ZOC MITE (METOPROLOL SUCCINATE) [Concomitant]

REACTIONS (9)
  - BLOOD LACTIC ACID INCREASED [None]
  - HEPATOCELLULAR DAMAGE [None]
  - HEPATOTOXICITY [None]
  - HYPERTHYROIDISM [None]
  - HYPOKALAEMIA [None]
  - HYPONATRAEMIA [None]
  - MULTI-ORGAN FAILURE [None]
  - PROGRESSIVE MULTIFOCAL LEUKOENCEPHALOPATHY [None]
  - URINARY TRACT INFECTION [None]
